FAERS Safety Report 23109991 (Version 1)
Quarter: 2023Q4

REPORT INFORMATION
  Report Type: Spontaneous
  Country: PK (occurrence: PK)
  Receive Date: 20231026
  Receipt Date: 20231026
  Transmission Date: 20240110
  Serious: Yes (Hospitalization)
  Sender: FDA-Public Use
  Company Number: PK-MYLANLABS-2023M1113518

PATIENT
  Age: 40 Year
  Sex: Female

DRUGS (11)
  1. NITROGLYCERIN [Suspect]
     Active Substance: NITROGLYCERIN
     Indication: Procedural hypertension
     Dosage: AT 1.5-3 MICS/KG/MIN (INFUSION)
     Route: 065
  2. METOPROLOL [Suspect]
     Active Substance: METOPROLOL
     Indication: Procedural hypertension
     Dosage: 4 MILLIGRAM
     Route: 065
  3. HYDRALAZINE [Suspect]
     Active Substance: HYDRALAZINE HYDROCHLORIDE
     Indication: Procedural hypertension
     Dosage: 15 MILLIGRAM, BOLUS
     Route: 042
  4. ETOMIDATE [Concomitant]
     Active Substance: ETOMIDATE
     Indication: Induction of anaesthesia
     Dosage: 16 MILLIGRAM
     Route: 065
  5. FENTANYL [Concomitant]
     Active Substance: FENTANYL\FENTANYL CITRATE
     Indication: Induction of anaesthesia
     Dosage: 100 MICROGRAM
     Route: 065
  6. FENTANYL [Concomitant]
     Active Substance: FENTANYL\FENTANYL CITRATE
     Dosage: 50 MICROGRAM
     Route: 065
  7. ATRACURIUM [Concomitant]
     Active Substance: ATRACURIUM
     Indication: Induction of anaesthesia
     Dosage: 30 MILLIGRAM
     Route: 065
  8. ATRACURIUM [Concomitant]
     Active Substance: ATRACURIUM
     Dosage: 10 MILLIGRAM
     Route: 065
  9. ROPIVACAINE [Concomitant]
     Active Substance: ROPIVACAINE
     Indication: Transversus abdominis plane block
     Dosage: 15 MILLILITER (0.25% ROPIVACAINE, 15 ML ON EACH SIDE)
     Route: 065
  10. ISOFLURANE [Concomitant]
     Active Substance: ISOFLURANE
     Indication: Maintenance of anaesthesia
     Dosage: UNK
     Route: 065
  11. MORPHINE [Concomitant]
     Active Substance: MORPHINE
     Indication: Analgesic therapy
     Dosage: 6 MILLIGRAM
     Route: 065

REACTIONS (2)
  - Drug ineffective for unapproved indication [Unknown]
  - Off label use [Unknown]
